FAERS Safety Report 6242863-3 (Version None)
Quarter: 2009Q2

REPORT INFORMATION
  Report Type: 
  Country: None (occurrence: None)
  Receive Date: 20090624
  Receipt Date: 20090617
  Transmission Date: 20091009
  Serious: Yes (Hospitalization)
  Sender: FDA-Public Use
  Company Number: B0579357A

PATIENT
  Sex: Male

DRUGS (8)
  1. AMOXICILLIN TRIHYDRATE [Suspect]
     Indication: ESCHERICHIA URINARY TRACT INFECTION
     Route: 048
     Dates: start: 20090101, end: 20090527
  2. RYTHMOL [Concomitant]
  3. ZYLORIC [Concomitant]
  4. DOLIPRANE [Concomitant]
     Dosage: 1G UNKNOWN
  5. PROSCAR [Concomitant]
  6. ALUMINUM HYDROXIDE AND MAGNESIUM TRISILICATE [Concomitant]
  7. DIFFU K [Concomitant]
  8. IMODIUM [Concomitant]

REACTIONS (7)
  - BLOOD CREATININE DECREASED [None]
  - BLOOD URINE PRESENT [None]
  - DIARRHOEA [None]
  - HYPONATRAEMIA [None]
  - LEUKOCYTURIA [None]
  - PROTEINURIA [None]
  - TUBULOINTERSTITIAL NEPHRITIS [None]
